FAERS Safety Report 7726581-8 (Version None)
Quarter: 2011Q3

REPORT INFORMATION
  Report Type: 
  Country: None (occurrence: None)
  Receive Date: 20110902
  Receipt Date: 20110826
  Transmission Date: 20111222
  Serious: Yes (Other)
  Sender: FDA-Public Use
  Company Number: PHEH2011US02653

PATIENT
  Sex: Female

DRUGS (1)
  1. RECLAST [Suspect]
     Indication: FIBRODYSPLASIA OSSIFICANS PROGRESSIVA
     Dosage: 5 MG/100 ML
     Route: 042

REACTIONS (2)
  - JAW FRACTURE [None]
  - PAIN IN JAW [None]
